FAERS Safety Report 7926955-6 (Version None)
Quarter: 2011Q4

REPORT INFORMATION
  Report Type: 
  Country: None (occurrence: None)
  Receive Date: 20111118
  Receipt Date: 20111110
  Transmission Date: 20120403
  Serious: Yes (Hospitalization)
  Sender: FDA-Public Use
  Company Number: GB-JNJFOC-20111106535

PATIENT
  Sex: Female

DRUGS (4)
  1. VALPROATE SODIUM [Concomitant]
     Route: 065
  2. RISPERDAL [Suspect]
     Indication: BIPOLAR DISORDER
     Route: 048
  3. TEMAZEPAM [Concomitant]
     Route: 065
  4. CITALOPRAM HYDROBROMIDE [Concomitant]
     Route: 065

REACTIONS (1)
  - SUPRAVENTRICULAR TACHYCARDIA [None]
